FAERS Safety Report 8216362 (Version 4)
Quarter: 2012Q4

REPORT INFORMATION
  Report Type: Report from Study
  Country: SE (occurrence: SE)
  Receive Date: 20111031
  Receipt Date: 20120920
  Transmission Date: 20130627
  Serious: Yes (Other)
  Sender: FDA-Public Use
  Company Number: SE-NAPPMUNDI-GBR-2011-0008963

PATIENT
  Age: 87 Year
  Sex: Male
  Weight: 92 kg

DRUGS (8)
  1. NITROLINGUAL [Concomitant]
     Indication: ANGINA PECTORIS
     Dosage: 0.4 mg, daily
     Route: 055
     Dates: start: 2009
  2. BUPRENORPHINE TRANSDERMAL SYSTEM [Suspect]
     Indication: PRODUCT USED FOR UNKNOWN INDICATION
     Dosage: 5 mcg, q1h
     Route: 062
     Dates: start: 20111004, end: 20111011
  3. BUPRENORPHINE TRANSDERMAL SYSTEM [Suspect]
     Dosage: 15 mcg, q1h
     Route: 062
     Dates: start: 20111018, end: 20111019
  4. BUPRENORPHINE TRANSDERMAL SYSTEM [Suspect]
     Dosage: 10 mcg, q1h
     Route: 062
     Dates: start: 20111011, end: 20111018
  5. METOPROLOL [Concomitant]
     Indication: HYPERTENSION
     Dosage: 50 mg, daily
     Route: 048
     Dates: start: 2009
  6. LEVAXIN [Concomitant]
     Indication: GOITRE
     Dosage: 0.05 mg, daily
     Route: 048
     Dates: start: 1952
  7. IMDUR [Concomitant]
     Indication: ANGINA PECTORIS
     Dosage: 30 mg, daily
     Route: 048
     Dates: start: 2009
  8. TROMBYL [Concomitant]
     Indication: CARDIAC DISORDER
     Dosage: 75 mg, daily
     Route: 048
     Dates: start: 2009

REACTIONS (4)
  - Aspartate aminotransferase increased [Recovered/Resolved]
  - Gamma-glutamyltransferase increased [Recovered/Resolved]
  - Blood alkaline phosphatase increased [Recovered/Resolved]
  - Alanine aminotransferase increased [Recovered/Resolved]
